FAERS Safety Report 18926531 (Version 2)
Quarter: 2021Q2

REPORT INFORMATION
  Report Type: Spontaneous
  Country: US (occurrence: US)
  Receive Date: 20210223
  Receipt Date: 20210428
  Transmission Date: 20210717
  Serious: No
  Sender: FDA-Public Use
  Company Number: US-AKCEA THERAPEUTICS-2020IS001590

PATIENT
  Age: 50 Year
  Sex: Female

DRUGS (3)
  1. ISSD (INTEGRATED SYRINGE SAFETY DEVICE) [Suspect]
     Active Substance: DEVICE
  2. TEGSEDI [Suspect]
     Active Substance: INOTERSEN SODIUM
     Indication: HEREDITARY NEUROPATHIC AMYLOIDOSIS
     Route: 058
     Dates: start: 20201007, end: 202012
  3. TEGSEDI [Suspect]
     Active Substance: INOTERSEN SODIUM
     Route: 058
     Dates: end: 202101

REACTIONS (12)
  - Creatinine urine abnormal [Unknown]
  - Platelet count decreased [Unknown]
  - Laboratory test interference [Unknown]
  - Urine leukocyte esterase positive [Unknown]
  - White blood cells urine positive [Unknown]
  - Protein urine present [Unknown]
  - Alanine aminotransferase abnormal [Unknown]
  - Bacterial test positive [Not Recovered/Not Resolved]
  - Urinary sediment present [Not Recovered/Not Resolved]
  - Urinary occult blood positive [Unknown]
  - Red blood cells urine positive [Unknown]
  - Urine protein/creatinine ratio increased [Unknown]
